FAERS Safety Report 12233625 (Version 1)
Quarter: 2016Q2

REPORT INFORMATION
  Report Type: Spontaneous
  Country: JP (occurrence: JP)
  Receive Date: 20160404
  Receipt Date: 20160404
  Transmission Date: 20160815
  Serious: Yes (Hospitalization)
  Sender: FDA-Public Use
  Company Number: JP-SUN PHARMACEUTICAL INDUSTRIES LTD-2016R1-113568

PATIENT
  Age: 59 Year
  Sex: Female

DRUGS (1)
  1. GEMCITABINE [Suspect]
     Active Substance: GEMCITABINE\GEMCITABINE HYDROCHLORIDE
     Indication: METASTASES TO BONE
     Dosage: 1250 MG/M^2 14 DAYS FOLLOWED BY A 7-DAY REST PERIOD
     Route: 065
     Dates: start: 201103

REACTIONS (6)
  - Tumour lysis syndrome [Unknown]
  - Hyperuricaemia [Unknown]
  - Renal impairment [Unknown]
  - Hepatic function abnormal [Unknown]
  - Hypercalcaemia [Unknown]
  - Anaemia [Unknown]
